FAERS Safety Report 5638797-5 (Version None)
Quarter: 2008Q1

REPORT INFORMATION
  Report Type: 
  Country: None (occurrence: None)
  Receive Date: 20080226
  Receipt Date: 20080215
  Transmission Date: 20080703
  Serious: Yes (Life-Threatening)
  Sender: FDA-Public Use
  Company Number: US-KINGPHARMUSA00001-K200800204

PATIENT

DRUGS (1)
  1. LEVOXYL [Suspect]

REACTIONS (3)
  - ANEURYSM [None]
  - CARDIAC DISORDER [None]
  - LUNG DISORDER [None]
